FAERS Safety Report 7767219 (Version 6)
Quarter: 2014Q2

REPORT INFORMATION
  Report Type: Spontaneous
  Country: PT (occurrence: PT)
  Receive Date: 20110120
  Receipt Date: 20140613
  Transmission Date: 20141212
  Serious: Yes (Other)
  Sender: FDA-Public Use
  Company Number: PHHY2011PT02024

PATIENT
  Age: 3 Year
  Sex: Male

DRUGS (7)
  1. CICLOSPORIN [Suspect]
     Indication: ERYTHRODERMIC PSORIASIS
     Dosage: 4 MG/KG
     Route: 048
  2. FLUCLOXACILLIN [Interacting]
     Indication: IMPETIGO
  3. FLUCLOXACILLIN [Interacting]
     Indication: ERYTHRODERMIC PSORIASIS
  4. GENTAMICIN [Concomitant]
     Indication: PSORIASIS
  5. GENTAMICIN [Concomitant]
     Indication: IMPETIGO
  6. EMOLLIENTS [Concomitant]
     Route: 061
  7. VITAMIN D [Concomitant]
     Route: 061

REACTIONS (9)
  - Drug hypersensitivity [Unknown]
  - Angioedema [Recovering/Resolving]
  - Urticaria [Recovering/Resolving]
  - Skin lesion [Recovering/Resolving]
  - Pyrexia [Recovering/Resolving]
  - Leukocytosis [Recovered/Resolved]
  - C-reactive protein increased [Recovered/Resolved]
  - Drug interaction [Unknown]
  - Blood immunoglobulin E increased [Unknown]
